FAERS Safety Report 24782085 (Version 1)
Quarter: 2024Q4

REPORT INFORMATION
  Report Type: Spontaneous
  Country: CH (occurrence: CH)
  Receive Date: 20241227
  Receipt Date: 20241227
  Transmission Date: 20250114
  Serious: Yes (Hospitalization)
  Sender: CHEPLAPHARM
  Company Number: CH-ROCHE-10000162097

PATIENT
  Age: 50 Year
  Sex: Male
  Weight: 80 kg

DRUGS (23)
  1. CLONAZEPAM [Suspect]
     Active Substance: CLONAZEPAM
     Indication: Drug withdrawal syndrome
     Dosage: DAILY DOSE: 0.5 MILLIGRAM
     Route: 048
     Dates: start: 20220415, end: 202204
  2. BROMAZEPAM [Suspect]
     Active Substance: BROMAZEPAM
     Indication: Drug withdrawal syndrome
     Dosage: DAILY DOSE: 3 MILLIGRAM
     Route: 048
     Dates: start: 202108
  3. BROMAZEPAM [Suspect]
     Active Substance: BROMAZEPAM
     Indication: Drug withdrawal syndrome
     Dosage: DAILY DOSE: 3 MILLIGRAM
     Route: 048
     Dates: end: 202112
  4. OLANZAPINE [Suspect]
     Active Substance: OLANZAPINE
  5. VALIUM [Suspect]
     Active Substance: DIAZEPAM
     Indication: Drug withdrawal syndrome
     Dosage: DOSE- 7.5-25 MG
     Route: 048
     Dates: start: 20220402
  6. OXAZEPAM [Suspect]
     Active Substance: OXAZEPAM
     Indication: Insomnia
     Dosage: DOSE OF 10-15 MG
     Route: 048
     Dates: start: 20201211
  7. OXAZEPAM [Suspect]
     Active Substance: OXAZEPAM
     Indication: Insomnia
     Dosage: DOSE OF 10-15 MG
     Route: 048
     Dates: end: 202102
  8. XANAX [Suspect]
     Active Substance: ALPRAZOLAM
     Indication: Drug withdrawal syndrome
     Dosage: 0.5 MG 2X EVER DAY?DAILY DOSE: 1 GRAM
     Route: 048
     Dates: start: 20210816, end: 202108
  9. PRAZEPAM [Suspect]
     Active Substance: PRAZEPAM
     Indication: Drug withdrawal syndrome
     Dosage: DOSE OF 11-30 MG/DAY
     Route: 048
     Dates: start: 20211209
  10. PRAZEPAM [Suspect]
     Active Substance: PRAZEPAM
     Indication: Drug withdrawal syndrome
     Dosage: THE DOSAGE OF PRAZEPAM WAS INCREASED TO 60 DROPS (I.E. 30 MG)
     Route: 048
     Dates: start: 20220402
  11. PRAZEPAM [Suspect]
     Active Substance: PRAZEPAM
     Indication: Drug withdrawal syndrome
     Dosage: DOSE OF 11-30 MG/DAY
     Route: 048
     Dates: end: 202203
  12. LORAZEPAM [Suspect]
     Active Substance: LORAZEPAM
     Indication: Drug withdrawal syndrome
     Dosage: DOSE OF 0.5-2.5 MG 1X/DAY
     Route: 048
     Dates: start: 20210209
  13. LORAZEPAM [Suspect]
     Active Substance: LORAZEPAM
     Indication: Drug withdrawal syndrome
     Dosage: DOSE OF 0.5-2.5 MG 1X/DAY
     Route: 048
     Dates: end: 20210806
  14. PAROXETINE [Concomitant]
     Active Substance: PAROXETINE
  15. ARIPIPRAZOLE [Concomitant]
     Active Substance: ARIPIPRAZOLE
  16. ESCITALOPRAM [Concomitant]
     Active Substance: ESCITALOPRAM OXALATE
  17. PREGABALIN [Concomitant]
     Active Substance: PREGABALIN
  18. LITHIUM [Concomitant]
     Active Substance: LITHIUM
  19. VALPROATE [Concomitant]
     Active Substance: VALPROIC ACID
  20. LEVOMEPROMAZINE [Concomitant]
     Active Substance: LEVOMEPROMAZINE
  21. LAMOTRIGINE [Concomitant]
     Active Substance: LAMOTRIGINE
  22. REBOXETINE [Concomitant]
     Active Substance: REBOXETINE
  23. FLUVOXAMINE [Concomitant]
     Active Substance: FLUVOXAMINE

REACTIONS (2)
  - Anxiety [Not Recovered/Not Resolved]
  - Off label use [Recovered/Resolved]
